FAERS Safety Report 5798007-5 (Version None)
Quarter: 2008Q3

REPORT INFORMATION
  Report Type: 
  Country: None (occurrence: None)
  Receive Date: 20080702
  Receipt Date: 20060525
  Transmission Date: 20090109
  Serious: Yes (Other)
  Sender: FDA-Public Use
  Company Number: B0425370A

PATIENT
  Age: 45 Year
  Sex: Female

DRUGS (2)
  1. HALFAN [Suspect]
     Indication: MALARIA
     Dosage: 1000MG PER DAY
     Route: 048
     Dates: start: 20060513, end: 20060514
  2. NO CONCURRENT MEDICATION [Concomitant]

REACTIONS (3)
  - ABDOMINAL PAIN UPPER [None]
  - FLATULENCE [None]
  - NAUSEA [None]
